FAERS Safety Report 6442807-5 (Version None)
Quarter: 2009Q4

REPORT INFORMATION
  Report Type: 
  Country: None (occurrence: None)
  Receive Date: 20091117
  Receipt Date: 20091112
  Transmission Date: 20100525
  Serious: Yes (Life-Threatening)
  Sender: FDA-Public Use
  Company Number: FR-ROCHE-668649

PATIENT
  Age: 74 Year
  Sex: Male

DRUGS (6)
  1. APRANAX [Suspect]
     Route: 048
  2. SPIRONOLACTONE [Suspect]
     Route: 048
  3. PREVISCAN [Concomitant]
  4. PRAVASTATIN [Concomitant]
     Dosage: DRUG NAME: SODIC PRAVASTATIN
  5. FUCIDINE CAP [Concomitant]
  6. IXPRIM [Concomitant]

REACTIONS (2)
  - HYPERKALAEMIA [None]
  - RENAL FAILURE ACUTE [None]
